FAERS Safety Report 5841748-1 (Version None)
Quarter: 2008Q3

REPORT INFORMATION
  Report Type: 
  Country: None (occurrence: None)
  Receive Date: 20080811
  Receipt Date: 20080811
  Transmission Date: 20090109
  Serious: No
  Sender: FDA-Public Use
  Company Number: None

PATIENT
  Age: 82 Year
  Sex: Male
  Weight: 68 kg

DRUGS (1)
  1. GABAPENTIN [Suspect]
     Indication: PHANTOM PAIN
     Dosage: 300 MG HS PO
     Route: 048
     Dates: start: 20080311, end: 20080602

REACTIONS (4)
  - ANGINA PECTORIS [None]
  - FEELING DRUNK [None]
  - SEDATION [None]
  - SOMNOLENCE [None]
